FAERS Safety Report 10879565 (Version 1)
Quarter: 2015Q1

REPORT INFORMATION
  Report Type: Spontaneous
  Country: US (occurrence: US)
  Receive Date: 20150302
  Receipt Date: 20150302
  Transmission Date: 20150721
  Serious: Yes (Other)
  Sender: FDA-Public Use
  Company Number: US-UNITED THERAPEUTICS-UNT-2015-000866

PATIENT
  Age: 69 Year
  Sex: Female
  Weight: 83.9 kg

DRUGS (5)
  1. WARFARIN [Concomitant]
     Active Substance: WARFARIN
     Indication: PRODUCT USED FOR UNKNOWN INDICATION
  2. TYVASO [Suspect]
     Active Substance: TREPROSTINIL
     Indication: PULMONARY HYPERTENSION
     Dosage: 54 ?G, QID
     Dates: start: 20121008
  3. TYVASO [Suspect]
     Active Substance: TREPROSTINIL
     Dosage: 54 ?G, QID
  4. ADEMPAS [Suspect]
     Active Substance: RIOCIGUAT
     Indication: PRODUCT USED FOR UNKNOWN INDICATION
  5. TYVASO [Suspect]
     Active Substance: TREPROSTINIL
     Indication: COR PULMONALE CHRONIC
     Dosage: 54 ?G, QID

REACTIONS (13)
  - Oedema peripheral [Unknown]
  - Blood pressure increased [Unknown]
  - Atrial fibrillation [Unknown]
  - Headache [Unknown]
  - Cold sweat [Unknown]
  - Oropharyngeal pain [Unknown]
  - Malaise [Unknown]
  - Flushing [Unknown]
  - Nasopharyngitis [Unknown]
  - Weight increased [Unknown]
  - Asthenia [Unknown]
  - Night sweats [Unknown]
  - Nasal congestion [Unknown]

NARRATIVE: CASE EVENT DATE: 201501
